FAERS Safety Report 10675236 (Version 2)
Quarter: 2014Q4

REPORT INFORMATION
  Report Type: Report from Study
  Country: US (occurrence: US)
  Receive Date: 20141224
  Receipt Date: 20141224
  Transmission Date: 20150529
  Serious: Yes (Other)
  Sender: FDA-Public Use
  Company Number: US-CELGENE-163-C5013-07071689

PATIENT
  Age: 48 Year
  Sex: Female

DRUGS (1)
  1. CC-5013 [Suspect]
     Active Substance: LENALIDOMIDE
     Indication: COMPLEX REGIONAL PAIN SYNDROME
     Dosage: 10 MILLIGRAM
     Route: 048
     Dates: start: 20060125, end: 20070728

REACTIONS (2)
  - Human chorionic gonadotropin positive [Recovered/Resolved]
  - Human chorionic gonadotropin increased [Recovered/Resolved]

NARRATIVE: CASE EVENT DATE: 20070725
